FAERS Safety Report 4914368-0 (Version None)
Quarter: 2006Q1

REPORT INFORMATION
  Report Type: 
  Country: None (occurrence: None)
  Receive Date: 20060113
  Receipt Date: 20051027
  Transmission Date: 20060701
  Serious: No
  Sender: FDA-Public Use
  Company Number: 2005SP001094

PATIENT
  Age: 42 Year
  Sex: Female

DRUGS (1)
  1. LUNESTA [Suspect]
     Dosage: 3 MG HS ORAL
     Route: 048
     Dates: start: 20050101, end: 20050101

REACTIONS (2)
  - DRY MOUTH [None]
  - NAUSEA [None]
